FAERS Safety Report 12857636 (Version 1)
Quarter: 2016Q4

REPORT INFORMATION
  Report Type: Spontaneous
  Country: JP (occurrence: JP)
  Receive Date: 20161018
  Receipt Date: 20161018
  Transmission Date: 20170207
  Serious: Yes (Other)
  Sender: FDA-Public Use
  Company Number: JP-009507513-1610JPN008453

PATIENT
  Sex: Male

DRUGS (5)
  1. ROZEREM [Concomitant]
     Active Substance: RAMELTEON
     Dosage: DAILY DOSAGE UNKNOWN
     Route: 048
  2. BELSOMRA [Suspect]
     Active Substance: SUVOREXANT
     Dosage: DAILY DOSAGE UNKNOWN
     Route: 048
     Dates: start: 20161011
  3. CONTOMIN [Concomitant]
     Active Substance: CHLORPROMAZINE
     Dosage: DAILY DOSAGE UNKNOWN
     Route: 048
  4. LUDIOMIL [Concomitant]
     Active Substance: MAPROTILINE HYDROCHLORIDE
     Dosage: DAILY DOSAGE UNKNOWN
     Route: 048
  5. DORAL [Concomitant]
     Active Substance: QUAZEPAM
     Dosage: DAILY DOSAGE UNKNOWN
     Route: 048

REACTIONS (3)
  - Paralysis [Unknown]
  - Agitation [Unknown]
  - Insomnia [Unknown]

NARRATIVE: CASE EVENT DATE: 20161011
